FAERS Safety Report 6330069-9 (Version None)
Quarter: 2009Q3

REPORT INFORMATION
  Report Type: 
  Country: None (occurrence: None)
  Receive Date: 20090827
  Receipt Date: 20070509
  Transmission Date: 20100115
  Serious: Yes (Other)
  Sender: FDA-Public Use
  Company Number: US-ASTRAZENECA-2006UW21460

PATIENT
  Age: 16044 Day
  Sex: Female
  Weight: 73.9 kg

DRUGS (10)
  1. SEROQUEL [Suspect]
     Indication: NERVOUSNESS
     Route: 048
     Dates: start: 19970101
  2. SEROQUEL [Suspect]
     Dosage: 100 MG - 800 MG
     Route: 048
     Dates: start: 20000314, end: 20060101
  3. ABILIFY [Suspect]
     Route: 048
     Dates: start: 20040308
  4. RISPERDAL [Suspect]
     Dosage: 1 - 2 MG
     Route: 048
     Dates: start: 19960704, end: 20050722
  5. HALDOL [Concomitant]
  6. THORAZINE [Concomitant]
  7. ATIVAN [Concomitant]
     Dates: start: 19960702
  8. COGENTIN [Concomitant]
     Dosage: 1 - 2 MG
     Dates: start: 19840404
  9. KLONOPIN [Concomitant]
     Dates: start: 20000315, end: 20060606
  10. CARDURA [Concomitant]
     Dates: start: 20000314

REACTIONS (4)
  - DIABETES MELLITUS INADEQUATE CONTROL [None]
  - DIABETIC NEUROPATHY [None]
  - TYPE 1 DIABETES MELLITUS [None]
  - TYPE 2 DIABETES MELLITUS [None]
